FAERS Safety Report 18097619 (Version 1)
Quarter: 2020Q3

REPORT INFORMATION
  Report Type: Spontaneous
  Country: PR (occurrence: PR)
  Receive Date: 20200731
  Receipt Date: 20200731
  Transmission Date: 20201103
  Serious: Yes (Death)
  Sender: FDA-Public Use
  Company Number: PR-ROCHE-2651701

PATIENT
  Age: 94 Year
  Sex: Female
  Weight: 44.49 kg

DRUGS (1)
  1. RITUXAN [Suspect]
     Active Substance: RITUXIMAB
     Indication: CHRONIC LYMPHOCYTIC LEUKAEMIA RECURRENT
     Route: 042
     Dates: start: 20200703

REACTIONS (1)
  - Death [Fatal]

NARRATIVE: CASE EVENT DATE: 20200708
